FAERS Safety Report 7396776-4 (Version None)
Quarter: 2011Q2

REPORT INFORMATION
  Report Type: 
  Country: None (occurrence: None)
  Receive Date: 20110406
  Receipt Date: 20110324
  Transmission Date: 20111010
  Serious: Yes (Hospitalization)
  Sender: FDA-Public Use
  Company Number: US-JNJFOC-20110310120

PATIENT
  Sex: Male

DRUGS (2)
  1. DIPHENHYDRAMINE HYDROCHLORIDE [Suspect]
     Indication: NASOPHARYNGITIS
     Route: 048
  2. DIPHENHYDRAMINE HYDROCHLORIDE [Suspect]
     Route: 048

REACTIONS (1)
  - PALPITATIONS [None]
